FAERS Safety Report 8613440 (Version 2)
Quarter: 2020Q4

REPORT INFORMATION
  Report Type: Spontaneous
  Country: US (occurrence: US)
  Receive Date: 20120613
  Receipt Date: 20201214
  Transmission Date: 20210114
  Serious: Yes (Other)
  Sender: FDA-Public Use
  Company Number: US-RB-041242-12

PATIENT

DRUGS (1)
  1. BUPRENEX [Suspect]
     Active Substance: BUPRENORPHINE HYDROCHLORIDE
     Indication: DRUG WITHDRAWAL SYNDROME NEONATAL
     Dosage: TREATMENT DURATION 23 ? 12 DAYS
     Route: 060

REACTIONS (6)
  - Paronychia [Unknown]
  - Cytomegalovirus infection [Unknown]
  - Aminoaciduria [Unknown]
  - Transaminases increased [Unknown]
  - Gastrooesophageal reflux disease [Unknown]
  - Poor feeding infant [Unknown]
